FAERS Safety Report 18320097 (Version 1)
Quarter: 2020Q3

REPORT INFORMATION
  Report Type: Spontaneous
  Country: IT (occurrence: IT)
  Receive Date: 20200928
  Receipt Date: 20200928
  Transmission Date: 20201103
  Serious: Yes (Hospitalization)
  Sender: FDA-Public Use
  Company Number: IT-SUN PHARMACEUTICAL INDUSTRIES LTD-2020RR-262249

PATIENT
  Age: 39 Year
  Sex: Male

DRUGS (3)
  1. FELISON 30 MG CAPSULE RIGIDE [Suspect]
     Active Substance: FLURAZEPAM MONOHYDROCHLORIDE
     Indication: PSYCHOMOTOR HYPERACTIVITY
     Dosage: 30 MILLIGRAM, DAILY
     Route: 048
     Dates: start: 20200803
  2. OLANZAPINE. [Suspect]
     Active Substance: OLANZAPINE
     Indication: PERSONALITY DISORDER
     Dosage: 10 MILLIGRAM, CYCLICAL
     Route: 048
     Dates: start: 20200803, end: 20200807
  3. VATRAN 10 MG COMPRESSE [Suspect]
     Active Substance: DIAZEPAM
     Indication: PSYCHOMOTOR HYPERACTIVITY
     Dosage: 40 MILLIGRAM, DAILY
     Route: 048
     Dates: start: 20200803

REACTIONS (3)
  - Drug ineffective [Recovered/Resolved]
  - Psychomotor hyperactivity [Recovered/Resolved]
  - Hallucination [Recovered/Resolved]

NARRATIVE: CASE EVENT DATE: 20200807
